FAERS Safety Report 13828371 (Version 4)
Quarter: 2017Q4

REPORT INFORMATION
  Report Type: Spontaneous
  Country: US (occurrence: US)
  Receive Date: 20170803
  Receipt Date: 20171017
  Transmission Date: 20180320
  Serious: No
  Sender: FDA-Public Use
  Company Number: US-PFIZER INC-2017333691

PATIENT
  Age: 61 Year
  Sex: Female
  Weight: 100 kg

DRUGS (7)
  1. MONTELUKAST [Concomitant]
     Active Substance: MONTELUKAST SODIUM
     Indication: HYPERSENSITIVITY
  2. OXYCODONE AND ACETAMINOPHEN [Concomitant]
     Active Substance: ACETAMINOPHEN\OXYCODONE HYDROCHLORIDE
     Indication: PAIN
     Dosage: UNK [OXYCODONE HYDROCHLORIDE-10 MG]/[ PARACETAMOL-325 MG]
  3. EMBEDA [Suspect]
     Active Substance: MORPHINE SULFATE\NALTREXONE HYDROCHLORIDE
     Indication: PAIN
     Dosage: 20MG/0.8 MG, 2X/DAY
     Route: 048
     Dates: start: 20170524, end: 20170526
  4. XTAMPZA ER [Concomitant]
     Active Substance: OXYCODONE
  5. EMBEDA [Suspect]
     Active Substance: MORPHINE SULFATE\NALTREXONE HYDROCHLORIDE
     Indication: SPINAL FUSION SURGERY
     Dosage: 20MG/0.8 MG, 2X/DAY
     Route: 048
     Dates: start: 20170522
  6. MONTELUKAST [Concomitant]
     Active Substance: MONTELUKAST SODIUM
     Indication: ASTHMA
     Dosage: 10 MG, 1X/DAY
  7. ELIQUIS [Concomitant]
     Active Substance: APIXABAN
     Indication: THROMBOSIS
     Dosage: 5 MG, 2X/DAY

REACTIONS (9)
  - Weight decreased [Unknown]
  - Malaise [Unknown]
  - Asthma [Recovered/Resolved]
  - Condition aggravated [Recovered/Resolved]
  - Insomnia [Recovering/Resolving]
  - Agitation [Recovered/Resolved]
  - Drug ineffective [Recovered/Resolved]
  - Decreased appetite [Unknown]
  - Muscle spasms [Unknown]

NARRATIVE: CASE EVENT DATE: 2017
